FAERS Safety Report 5958845-2 (Version None)
Quarter: 2008Q4

REPORT INFORMATION
  Report Type: 
  Country: None (occurrence: None)
  Receive Date: 20081117
  Receipt Date: 20081105
  Transmission Date: 20090506
  Serious: Yes (Life-Threatening)
  Sender: FDA-Public Use
  Company Number: GXKR2008GB10572

PATIENT
  Age: 80 Year
  Sex: Male

DRUGS (5)
  1. CEFTRIAXONE [Suspect]
     Indication: ABDOMINAL SEPSIS
     Dosage: 2 G, QD, INTRAVENOUS
     Route: 042
     Dates: start: 20080916, end: 20080916
  2. MEROPENEM (MEROPENEM) [Suspect]
     Indication: ABDOMINAL SEPSIS
     Dosage: 1 G, BID, INTRAVENOUS
     Route: 042
     Dates: start: 20080916, end: 20080922
  3. AMIODARONE HCL [Concomitant]
  4. HYDROCORTISONE [Concomitant]
  5. METRONIDAZOLE [Concomitant]

REACTIONS (5)
  - HYPOTENSION [None]
  - INTESTINAL ISCHAEMIA [None]
  - RASH MACULO-PAPULAR [None]
  - SEPTIC SHOCK [None]
  - TOXIC EPIDERMAL NECROLYSIS [None]
